FAERS Safety Report 8990493 (Version 2)
Quarter: 2013Q4

REPORT INFORMATION
  Report Type: Report from Study
  Country: CA (occurrence: CA)
  Receive Date: 20121228
  Receipt Date: 20131230
  Transmission Date: 20140711
  Serious: Yes (Hospitalization, Other)
  Sender: FDA-Public Use
  Company Number: CA-ROCHE-1167398

PATIENT
  Age: 53 Year
  Sex: Female
  Weight: 80.09 kg

DRUGS (9)
  1. OMALIZUMAB [Suspect]
     Indication: ASTHMA
     Route: 058
     Dates: start: 20050613
  2. OMALIZUMAB [Suspect]
     Route: 058
     Dates: start: 20050706
  3. OMALIZUMAB [Suspect]
     Route: 058
     Dates: start: 20131218
  4. ADVAIR [Concomitant]
     Indication: PRODUCT USED FOR UNKNOWN INDICATION
     Dosage: UNK
     Route: 065
  5. SALBUTAMOL [Concomitant]
     Indication: PRODUCT USED FOR UNKNOWN INDICATION
  6. REACTINE (CANADA) [Concomitant]
     Indication: PRODUCT USED FOR UNKNOWN INDICATION
  7. ALVESCO [Concomitant]
     Indication: PRODUCT USED FOR UNKNOWN INDICATION
     Dosage: UNK
     Route: 065
  8. QVAR [Concomitant]
     Indication: PRODUCT USED FOR UNKNOWN INDICATION
  9. SPIRIVA [Concomitant]

REACTIONS (27)
  - Asthma [Recovered/Resolved]
  - Cough [Unknown]
  - Depressed mood [Unknown]
  - Wound infection [Recovering/Resolving]
  - Contusion [Recovered/Resolved]
  - Asthenia [Unknown]
  - Mobility decreased [Unknown]
  - Sinus congestion [Recovering/Resolving]
  - Blood pressure systolic increased [Unknown]
  - Fall [Unknown]
  - Sinusitis [Unknown]
  - Malaise [Unknown]
  - Respiratory rate decreased [Not Recovered/Not Resolved]
  - Sputum discoloured [Unknown]
  - Heart rate increased [Unknown]
  - Pulmonary function test decreased [Unknown]
  - Nasopharyngitis [Unknown]
  - Dizziness [Unknown]
  - Multiple allergies [Unknown]
  - Oedema [Unknown]
  - Respiratory tract congestion [Unknown]
  - Fatigue [Unknown]
  - Seasonal allergy [Unknown]
  - Nasal congestion [Recovered/Resolved]
  - Joint injury [Unknown]
  - Dysphonia [Unknown]
  - Drug ineffective [Unknown]
